FAERS Safety Report 21625902 (Version 1)
Quarter: 2022Q4

REPORT INFORMATION
  Report Type: Spontaneous
  Country: US (occurrence: US)
  Receive Date: 20221122
  Receipt Date: 20221122
  Transmission Date: 20230113
  Serious: No
  Sender: FDA-Public Use
  Company Number: US-ORGANON-O2211USA001472

PATIENT
  Sex: Male

DRUGS (6)
  1. PROPECIA [Suspect]
     Active Substance: FINASTERIDE
     Dosage: UNK
     Route: 048
     Dates: start: 201703, end: 2018
  2. PROPECIA [Suspect]
     Active Substance: FINASTERIDE
     Dosage: UNK
     Route: 048
     Dates: start: 20220805
  3. FINASTERIDE [Suspect]
     Active Substance: FINASTERIDE
     Dosage: UNK
     Dates: start: 2018
  4. MINOXIDIL [Suspect]
     Active Substance: MINOXIDIL
     Dosage: UNK
     Dates: start: 202112
  5. DUTASTERIDE [Suspect]
     Active Substance: DUTASTERIDE
     Dosage: UNK
     Dates: start: 202112
  6. BIOTIN [Suspect]
     Active Substance: BIOTIN
     Dosage: UNK
     Dates: start: 202112

REACTIONS (5)
  - Hair injury [Not Recovered/Not Resolved]
  - Hair growth abnormal [Unknown]
  - Chest discomfort [Unknown]
  - Palpitations [Unknown]
  - Intentional dose omission [Unknown]

NARRATIVE: CASE EVENT DATE: 20221113
